FAERS Safety Report 8156588-0 (Version None)
Quarter: 2012Q1

REPORT INFORMATION
  Report Type: 
  Country: None (occurrence: None)
  Receive Date: 20120222
  Receipt Date: 20120215
  Transmission Date: 20120608
  Serious: Yes (Other)
  Sender: FDA-Public Use
  Company Number: FR-PFIZER INC-2012040657

PATIENT
  Age: 63 Year
  Sex: Male

DRUGS (7)
  1. FLUCONAZOLE [Suspect]
     Indication: OROPHARYNGEAL CANDIDIASIS
     Dosage: 100 MG, 1X/DAY
     Route: 048
     Dates: start: 20120119
  2. MOXIFLOXACIN HCL [Suspect]
     Dosage: UNK
     Dates: start: 20120101
  3. POTASSIUM CHLORIDE [Concomitant]
  4. PANTOPRAZOLE SODIUM [Suspect]
     Dosage: UNK
     Dates: start: 20120101
  5. POLYETHYLENE GLYCOL [Concomitant]
  6. CORDARONE [Suspect]
     Dosage: UNK
     Dates: start: 20120101
  7. ZOMETA [Suspect]
     Dosage: UNK
     Dates: start: 20120119

REACTIONS (1)
  - PANCYTOPENIA [None]
